FAERS Safety Report 9194323 (Version 1)
Quarter: 2013Q1

REPORT INFORMATION
  Report Type: Spontaneous
  Country: US (occurrence: US)
  Receive Date: 20130325
  Receipt Date: 20130325
  Transmission Date: 20140127
  Serious: Yes (Other)
  Sender: FDA-Public Use
  Company Number: US-RB-051332-13

PATIENT
  Age: 82 Year
  Sex: Male

DRUGS (5)
  1. MUCINEX DM MAXIMUM STRENGTH (GUAIFENESIN) [Suspect]
     Indication: INCREASED UPPER AIRWAY SECRETION
     Dosage: TOOK 1 TABLET OF MUCINEX DM MAXIMUM STRENGTH ON 10-MAR-2013.
     Route: 048
     Dates: start: 20130310
  2. MUCINEX DM MAXIMUM STRENGTH (DEXTROMETHORPHAN HYDROBROMIDE) [Suspect]
  3. INSULIN [Concomitant]
     Indication: DIABETES MELLITUS
  4. METFORMIN [Concomitant]
     Indication: DIABETES MELLITUS
  5. LOVASTATIN [Concomitant]
     Indication: BLOOD CHOLESTEROL

REACTIONS (9)
  - Hallucination [Unknown]
  - Nightmare [Recovered/Resolved]
  - Dyspnoea [Recovered/Resolved]
  - Chest pain [Recovered/Resolved]
  - Body temperature decreased [Recovered/Resolved]
  - Tremor [Recovered/Resolved]
  - Restlessness [Unknown]
  - Fatigue [Unknown]
  - Dizziness [Recovered/Resolved]
